FAERS Safety Report 18592918 (Version 1)
Quarter: 2020Q4

REPORT INFORMATION
  Report Type: Report from Study
  Country: None (occurrence: US)
  Receive Date: 20201208
  Receipt Date: 20201208
  Transmission Date: 20210114
  Serious: Yes (Death, Hospitalization)
  Sender: FDA-Public Use
  Company Number: US-ABBVIE-20P-163-3343461-00

PATIENT
  Age: 73 Year
  Sex: Male
  Weight: 65 kg

DRUGS (17)
  1. GILTERITINIB [Suspect]
     Active Substance: GILTERITINIB
     Indication: ACUTE MYELOID LEUKAEMIA
     Route: 048
     Dates: start: 20200203, end: 20200318
  2. GILTERITINIB [Suspect]
     Active Substance: GILTERITINIB
     Route: 048
     Dates: start: 20200323, end: 20200324
  3. TRIAMCINOLONE [Concomitant]
     Active Substance: TRIAMCINOLONE
     Indication: INFECTION PROPHYLAXIS
     Route: 061
     Dates: start: 20141031, end: 20200203
  4. VENETOCLAX. [Suspect]
     Active Substance: VENETOCLAX
     Indication: ACUTE MYELOID LEUKAEMIA
     Route: 048
     Dates: start: 20200204, end: 20200204
  5. VENETOCLAX. [Suspect]
     Active Substance: VENETOCLAX
     Route: 048
     Dates: start: 20200323, end: 20200324
  6. VENETOCLAX. [Suspect]
     Active Substance: VENETOCLAX
     Route: 048
     Dates: start: 20200325, end: 20200421
  7. TRIAMCINOLONE [Concomitant]
     Active Substance: TRIAMCINOLONE
     Route: 061
     Dates: start: 20200212, end: 20200301
  8. HYDROCODONE- ACETAMINOPHEN [Concomitant]
     Indication: ARTHRALGIA
     Route: 048
     Dates: start: 20200127
  9. ALLOPURINOL. [Concomitant]
     Active Substance: ALLOPURINOL
     Indication: PROPHYLAXIS
     Route: 048
     Dates: start: 20200203, end: 20200211
  10. ACYCLOVIR. [Concomitant]
     Active Substance: ACYCLOVIR
     Indication: INFECTION PROPHYLAXIS
     Route: 048
     Dates: start: 20200207
  11. VENETOCLAX. [Suspect]
     Active Substance: VENETOCLAX
     Route: 048
     Dates: start: 20200206, end: 20200211
  12. POLYETHYLENE GLYCOL [Concomitant]
     Active Substance: POLYETHYLENE GLYCOLS
     Indication: CONSTIPATION
     Route: 048
     Dates: start: 20200207
  13. BENADRYL [Concomitant]
     Active Substance: DIPHENHYDRAMINE HYDROCHLORIDE
     Indication: RASH
     Dosage: 1 APPLICATION
     Route: 061
     Dates: start: 20200217
  14. VENETOCLAX. [Suspect]
     Active Substance: VENETOCLAX
     Route: 048
     Dates: start: 20200205, end: 20200205
  15. VENETOCLAX. [Suspect]
     Active Substance: VENETOCLAX
     Route: 048
     Dates: start: 20200212, end: 20200315
  16. BENADRYL [Concomitant]
     Active Substance: DIPHENHYDRAMINE HYDROCHLORIDE
     Indication: PROPHYLAXIS
     Route: 048
     Dates: start: 20200217, end: 20200217
  17. LEVOFLOXACIN. [Concomitant]
     Active Substance: LEVOFLOXACIN
     Indication: INFECTION PROPHYLAXIS
     Route: 048
     Dates: start: 20200211

REACTIONS (3)
  - Systemic mycosis [Fatal]
  - Skin infection [Fatal]
  - Febrile neutropenia [Not Recovered/Not Resolved]

NARRATIVE: CASE EVENT DATE: 20200324
